FAERS Safety Report 5171194-8 (Version None)
Quarter: 2006Q4

REPORT INFORMATION
  Report Type: 
  Country: None (occurrence: None)
  Receive Date: 20061213
  Receipt Date: 20060110
  Transmission Date: 20070319
  Serious: Yes (Other)
  Sender: FDA-Public Use
  Company Number: US-AMGEN-KDL164675

PATIENT
  Sex: Female

DRUGS (1)
  1. ENBREL [Suspect]
     Indication: PSORIASIS
     Route: 058
     Dates: start: 20040901, end: 20051001

REACTIONS (5)
  - CELLULITIS [None]
  - OSTEOMYELITIS [None]
  - RASH [None]
  - SKIN ULCER [None]
  - STAPHYLOCOCCAL INFECTION [None]
